FAERS Safety Report 8881599 (Version 1)
Quarter: 2012Q4

REPORT INFORMATION
  Report Type: Report from Study
  Country: GB (occurrence: GB)
  Receive Date: 20121101
  Receipt Date: 20121101
  Transmission Date: 20130627
  Serious: Yes (Death)
  Sender: FDA-Public Use
  Company Number: GB-ROCHE-1151245

PATIENT
  Age: 74 Year
  Sex: Male

DRUGS (2)
  1. RITUXIMAB [Suspect]
     Indication: RHEUMATOID ARTHRITIS
     Route: 065
     Dates: start: 20120607
  2. AZATHIOPRINE [Concomitant]
     Route: 065
     Dates: start: 20120516

REACTIONS (3)
  - Myocardial infarction [Fatal]
  - Cardiac failure congestive [Fatal]
  - Renal failure chronic [Fatal]
